FAERS Safety Report 7788238-7 (Version None)
Quarter: 2011Q3

REPORT INFORMATION
  Report Type: 
  Country: None (occurrence: None)
  Receive Date: 20110930
  Receipt Date: 20110919
  Transmission Date: 20111222
  Serious: Yes (Other)
  Sender: FDA-Public Use
  Company Number: US-ELI_LILLY_AND_COMPANY-US201007005354

PATIENT
  Sex: Male

DRUGS (3)
  1. FORTEO [Suspect]
     Indication: OSTEOPOROSIS
     Dosage: 20 UG, DAILY (1/D)
     Dates: start: 20091101
  2. ANTIVIRALS [Concomitant]
  3. FORTEO [Suspect]
     Dosage: 20 UG, QD

REACTIONS (5)
  - ELECTROCARDIOGRAM ABNORMAL [None]
  - RENAL CYST [None]
  - INJECTION SITE ERYTHEMA [None]
  - RENAL SURGERY [None]
  - HERPES ZOSTER [None]
